FAERS Safety Report 15822373 (Version 1)
Quarter: 2019Q1

REPORT INFORMATION
  Report Type: Spontaneous
  Country: NL (occurrence: NL)
  Receive Date: 20190114
  Receipt Date: 20190114
  Transmission Date: 20190417
  Serious: Yes (Death, Hospitalization)
  Sender: FDA-Public Use
  Company Number: NL-CASPER PHARMA LLC-2018CAS000414

PATIENT
  Age: 38 Year
  Sex: Female
  Weight: 45 kg

DRUGS (7)
  1. TRIMETHOPRIM-SULFAMETHOXAZOLE [Concomitant]
     Active Substance: SULFAMETHOXAZOLE\TRIMETHOPRIM
     Indication: STENOTROPHOMONAS INFECTION
     Dosage: 480 MILLIGRAM, BID
     Route: 048
  2. OMEPRAZOLE. [Concomitant]
     Active Substance: OMEPRAZOLE
     Indication: DYSPEPSIA
     Dosage: 20 MILLIGRAM, QD
     Route: 065
  3. TEICOPLANIN [Concomitant]
     Active Substance: TEICOPLANIN
     Indication: STENOTROPHOMONAS INFECTION
     Dosage: 400 MILLIGRAM, QD
     Route: 065
  4. BISMUTH, METRONIDAZOLE, TETRACYCLIN [Suspect]
     Active Substance: BISMUTH SUBSALICYLATE\METRONIDAZOLE\TETRACYCLINE HYDROCHLORIDE
     Dosage: 1500 MILLIGRAM, QD; TOTAL DOSE: 132 G
     Route: 042
  5. BACLOFEN. [Concomitant]
     Active Substance: BACLOFEN
     Indication: PAIN
     Dosage: 25 MILLIGRAM, TID
     Route: 065
  6. BISMUTH, METRONIDAZOLE, TETRACYCLIN [Suspect]
     Active Substance: BISMUTH SUBSALICYLATE\METRONIDAZOLE\TETRACYCLINE HYDROCHLORIDE
     Indication: OSTEOMYELITIS
     Dosage: 500 MILLIGRAM, QID
     Route: 065
  7. BACLOFEN. [Concomitant]
     Active Substance: BACLOFEN
     Indication: CONGENITAL SPINAL CORD ANOMALY

REACTIONS (2)
  - Toxic encephalopathy [Fatal]
  - Product use in unapproved indication [Unknown]
